FAERS Safety Report 5035268-4 (Version None)
Quarter: 2006Q2

REPORT INFORMATION
  Report Type: 
  Country: None (occurrence: None)
  Receive Date: 20060627
  Receipt Date: 20060606
  Transmission Date: 20061013
  Serious: Yes (Disabling)
  Sender: FDA-Public Use
  Company Number: US-ROCHE-450978

PATIENT
  Sex: Male

DRUGS (1)
  1. BONIVA [Suspect]
     Indication: DRUG USE FOR UNKNOWN INDICATION
     Dosage: STRENGTH AND FORMULATION REPORTED AS 150
     Route: 048
     Dates: start: 20051215, end: 20060208

REACTIONS (1)
  - OSTEONECROSIS [None]
